FAERS Safety Report 19593395 (Version 3)
Quarter: 2022Q1

REPORT INFORMATION
  Report Type: Report from Study
  Country: US (occurrence: US)
  Receive Date: 20210722
  Receipt Date: 20220329
  Transmission Date: 20220423
  Serious: No
  Sender: FDA-Public Use
  Company Number: NVSC2021US165195

PATIENT
  Age: 64 Year
  Sex: Male

DRUGS (3)
  1. ENTRESTO [Suspect]
     Active Substance: SACUBITRIL\VALSARTAN
     Indication: Product used for unknown indication
     Dosage: 100 MG, (49/51 MG)
     Route: 065
     Dates: start: 20210308
  2. ENTRESTO [Suspect]
     Active Substance: SACUBITRIL\VALSARTAN
     Dosage: UNK
     Route: 065
  3. HYDROCHLOROTHIAZIDE [Suspect]
     Active Substance: HYDROCHLOROTHIAZIDE
     Indication: Product used for unknown indication
     Dosage: UNK
     Route: 065
     Dates: end: 202109

REACTIONS (6)
  - Dyspnoea exertional [Recovered/Resolved]
  - Blood pressure increased [Recovering/Resolving]
  - Insomnia [Unknown]
  - Tachyphrenia [Unknown]
  - Psychomotor hyperactivity [Unknown]
  - Myalgia [Unknown]

NARRATIVE: CASE EVENT DATE: 20210701
